FAERS Safety Report 5740647-3 (Version None)
Quarter: 2008Q2

REPORT INFORMATION
  Report Type: 
  Country: None (occurrence: None)
  Receive Date: 20080516
  Receipt Date: 20080506
  Transmission Date: 20081010
  Serious: Yes (Other)
  Sender: FDA-Public Use
  Company Number: B0520285A

PATIENT
  Age: 25 Year
  Sex: Male

DRUGS (3)
  1. LAMICTAL [Suspect]
     Indication: FRONTAL LOBE EPILEPSY
     Route: 048
     Dates: start: 20040101
  2. HEPT-A-MYL [Concomitant]
     Route: 065
  3. GUTRON [Concomitant]
     Route: 065

REACTIONS (2)
  - ACNE [None]
  - GLAUCOMA [None]
